FAERS Safety Report 5577157-2 (Version None)
Quarter: 2007Q4

REPORT INFORMATION
  Report Type: 
  Country: None (occurrence: None)
  Receive Date: 20071228
  Receipt Date: 20071218
  Transmission Date: 20080405
  Serious: Yes (Hospitalization, Disabling, Other)
  Sender: FDA-Public Use
  Company Number: JP-PFIZER INC-2007091273

PATIENT
  Sex: Female
  Weight: 54 kg

DRUGS (5)
  1. SILDENAFIL (PAH) [Suspect]
     Indication: PULMONARY HYPERTENSION
     Route: 048
  2. ALDACTONE [Suspect]
     Indication: PULMONARY HYPERTENSION
     Route: 048
  3. LASIX [Suspect]
     Indication: PULMONARY HYPERTENSION
     Route: 048
  4. TRACLEER [Suspect]
     Indication: PULMONARY HYPERTENSION
     Route: 048
  5. DORNER [Concomitant]
     Route: 048

REACTIONS (3)
  - DEAFNESS [None]
  - MIGRAINE [None]
  - VERTIGO [None]
